FAERS Safety Report 16345961 (Version 2)
Quarter: 2019Q2

REPORT INFORMATION
  Report Type: Spontaneous
  Country: US (occurrence: US)
  Receive Date: 20190523
  Receipt Date: 20190621
  Transmission Date: 20190711
  Serious: Yes (Hospitalization, Other)
  Sender: FDA-Public Use
  Company Number: US-GW PHARMA-201905USGW1482

PATIENT

DRUGS (1)
  1. EPIDIOLEX [Suspect]
     Active Substance: CANNABIDIOL
     Indication: SEIZURE
     Dosage: 110 MILLIGRAM, BID
     Route: 048

REACTIONS (3)
  - Choking [Recovering/Resolving]
  - Generalised tonic-clonic seizure [Unknown]
  - Dysphagia [Recovering/Resolving]

NARRATIVE: CASE EVENT DATE: 2019
